FAERS Safety Report 14754785 (Version 1)
Quarter: 2018Q2

REPORT INFORMATION
  Report Type: Spontaneous
  Country: DE (occurrence: DE)
  Receive Date: 20180413
  Receipt Date: 20180413
  Transmission Date: 20180711
  Serious: No
  Sender: FDA-Public Use
  Company Number: DE-ALKEM LABORATORIES LIMITED-DE-ALKEM-2017-02178

PATIENT
  Age: 43 Year
  Sex: Female

DRUGS (10)
  1. QUETIAPINE FUMARATE. [Suspect]
     Active Substance: QUETIAPINE FUMARATE
     Indication: COGNITIVE DISORDER
     Dosage: 150 MG, QD
     Route: 065
  2. ARIPIPRAZOLE. [Suspect]
     Active Substance: ARIPIPRAZOLE
     Indication: COGNITIVE DISORDER
     Dosage: 5 MG, QD
     Route: 065
  3. TRASTUZUMAB. [Suspect]
     Active Substance: TRASTUZUMAB
     Indication: BREAST CANCER FEMALE
     Dosage: 4 CYCLES WITH DOCETAXEL/TRASTUZUMAB, AND THEN TRASTUZUMAB WAS GIVEN ALONE FOR 1 YEAR ()
     Route: 065
  4. LITHIUM. [Suspect]
     Active Substance: LITHIUM
     Indication: COGNITIVE DISORDER
     Dosage: 675 MG, UNK
     Route: 065
  5. DOCETAXEL. [Suspect]
     Active Substance: DOCETAXEL
     Indication: BREAST CANCER FEMALE
     Dosage: 4 CYCLES OF DOCETAXEL/TRASTUZUMAB ()
     Route: 065
  6. VENLAFAXINE [Suspect]
     Active Substance: VENLAFAXINE HYDROCHLORIDE
     Indication: COGNITIVE DISORDER
     Dosage: 112.5 MG, QD
     Route: 065
  7. GOSERELIN [Suspect]
     Active Substance: GOSERELIN
     Indication: BREAST CANCER FEMALE
     Dosage: UNK
     Route: 065
  8. MIRTAZAPINE. [Suspect]
     Active Substance: MIRTAZAPINE
     Indication: COGNITIVE DISORDER
     Dosage: 15 MG, QD
     Route: 065
  9. CYCLOPHOSPHAMIDE. [Suspect]
     Active Substance: CYCLOPHOSPHAMIDE
     Indication: BREAST CANCER FEMALE
     Dosage: 4 CYCLES OF EPIRUBICIN/CYCLOPHOSPHAMIDE ()
     Route: 065
  10. EPIRUBICIN [Suspect]
     Active Substance: EPIRUBICIN
     Indication: BREAST CANCER FEMALE
     Dosage: 4 CYCLES OF EPIRUBICIN/CYCLOPHOSPHAMIDE ()
     Route: 065

REACTIONS (1)
  - Off label use [Recovering/Resolving]
